FAERS Safety Report 10386535 (Version 1)
Quarter: 2014Q3

REPORT INFORMATION
  Report Type: Spontaneous
  Country: US (occurrence: None)
  Receive Date: 20140814
  Receipt Date: 20140814
  Transmission Date: 20150326
  Serious: Yes (Hospitalization)
  Sender: FDA-Public Use
  Company Number: None

PATIENT
  Age: 73 Year
  Sex: Male
  Weight: 78.3 kg

DRUGS (2)
  1. CETUXIMAB [Suspect]
     Active Substance: CETUXIMAB
     Dosage: EVERY OTHER WEEK
  2. BMK120 [Concomitant]

REACTIONS (4)
  - Orthostatic intolerance [None]
  - Asthenia [None]
  - Autonomic nervous system imbalance [None]
  - Posturing [None]

NARRATIVE: CASE EVENT DATE: 20140812
